FAERS Safety Report 8799129 (Version 2)
Quarter: 2012Q4

REPORT INFORMATION
  Report Type: Spontaneous
  Country: US (occurrence: None)
  Receive Date: 20120914
  Receipt Date: 20121004
  Transmission Date: 20130627
  Serious: Yes (Life-Threatening)
  Sender: FDA-Public Use
  Company Number: 1405170

PATIENT
  Age: 58 Year
  Sex: Male
  Weight: 123.64 kg

DRUGS (1)
  1. HYDROMORPHONE HYDROCHLORIDE [Suspect]
     Indication: DRUG USE FOR UNKNOWN INDICATION
     Dates: start: 20120828, end: 20120828

REACTIONS (3)
  - Pulse absent [None]
  - Hypotension [None]
  - Dyspnoea [None]
